FAERS Safety Report 8782536 (Version 3)
Quarter: 2012Q4

REPORT INFORMATION
  Report Type: 
  Country: GB (occurrence: GB)
  Receive Date: 20120913
  Receipt Date: 20120929
  Transmission Date: 20130627
  Serious: Yes (Hospitalization)
  Sender: FDA-Public Use
  Company Number: GB-009507513-1209GBR003072

PATIENT
  Sex: Female

DRUGS (1)
  1. ETONOGESTREL [Suspect]
     Dosage: UNK

REACTIONS (4)
  - Body fat disorder [Unknown]
  - Surgery [Unknown]
  - Lower respiratory tract infection [Unknown]
  - Incorrect drug administration duration [Unknown]
